FAERS Safety Report 10094434 (Version 1)
Quarter: 2014Q2

REPORT INFORMATION
  Report Type: Spontaneous
  Country: US (occurrence: US)
  Receive Date: 20140422
  Receipt Date: 20140422
  Transmission Date: 20141212
  Serious: No
  Sender: FDA-Public Use
  Company Number: US-MYLANLABS-2013S1015778

PATIENT
  Age: 63 Year
  Sex: Female

DRUGS (2)
  1. METHIMAZOLE TABLETS USP [Suspect]
     Indication: HYPERTHYROIDISM
     Route: 048
     Dates: start: 201301
  2. AMLODIPINE [Concomitant]
     Indication: BLOOD PRESSURE INCREASED
     Route: 048
     Dates: start: 201306

REACTIONS (1)
  - Urticaria [Not Recovered/Not Resolved]
